FAERS Safety Report 6443353-5 (Version None)
Quarter: 2009Q4

REPORT INFORMATION
  Report Type: 
  Country: None (occurrence: None)
  Receive Date: 20091117
  Receipt Date: 20091113
  Transmission Date: 20100525
  Serious: Yes (Life-Threatening, Hospitalization)
  Sender: FDA-Public Use
  Company Number: FR-MERCK-0911FRA00050

PATIENT
  Age: 93 Year
  Sex: Female

DRUGS (10)
  1. DIHYDROERGOCRISTINE MESYLATE AND RAUBASINE [Concomitant]
     Route: 065
  2. SPIRONOLACTONE [Suspect]
     Indication: HYPERTENSION
     Route: 048
     Dates: end: 20090921
  3. HYZAAR [Suspect]
     Indication: HYPERTENSION
     Route: 048
     Dates: end: 20090921
  4. URAPIDIL [Concomitant]
     Route: 065
  5. VITAMIN E ACETATE DL-FORM [Concomitant]
     Route: 048
  6. ASPIRIN LYSINE [Concomitant]
     Route: 048
  7. GLICLAZIDE [Concomitant]
     Route: 065
  8. ASPIRIN AND CAFFEINE AND PROPOXYPHENE HYDROCHLORIDE [Concomitant]
     Route: 065
  9. KETOPROFEN [Concomitant]
     Route: 061
  10. SODIUM ISOSPAGLUMATE [Concomitant]
     Route: 065

REACTIONS (5)
  - ATRIOVENTRICULAR BLOCK [None]
  - ELECTROCARDIOGRAM ABNORMAL [None]
  - HYPERKALAEMIA [None]
  - LOSS OF CONSCIOUSNESS [None]
  - MALAISE [None]
